FAERS Safety Report 18251382 (Version 15)
Quarter: 2021Q3

REPORT INFORMATION
  Report Type: Spontaneous
  Country: JP (occurrence: JP)
  Receive Date: 20200910
  Receipt Date: 20210907
  Transmission Date: 20211014
  Serious: Yes (Death, Hospitalization, Disabling)
  Sender: FDA-Public Use
  Company Number: NVSJ2020JP007817

PATIENT
  Age: 25 Year
  Sex: Female

DRUGS (14)
  1. PREDNISOLONE. [Concomitant]
     Active Substance: PREDNISOLONE
     Dosage: 60 MG
     Route: 065
     Dates: start: 20201016
  2. SANDIMMUN INFUSION [Suspect]
     Active Substance: CYCLOSPORINE
     Indication: PRODUCT USED FOR UNKNOWN INDICATION
     Dosage: UNK
     Route: 065
     Dates: start: 202011
  3. ENDOXAN [Suspect]
     Active Substance: CYCLOPHOSPHAMIDE
     Indication: GRAFT VERSUS HOST DISEASE
     Dosage: UNK
     Route: 065
     Dates: start: 202010
  4. PREDNISOLONE. [Concomitant]
     Active Substance: PREDNISOLONE
     Indication: IMMUNE EFFECTOR CELL-ASSOCIATED NEUROTOXICITY SYNDROME
     Dosage: 80 MG
     Route: 065
     Dates: start: 20200918
  5. PREDNISOLONE. [Concomitant]
     Active Substance: PREDNISOLONE
     Indication: QUADRIPLEGIA
     Dosage: 40 MG
     Route: 065
     Dates: start: 202009
  6. DEXAMETHASONE. [Concomitant]
     Active Substance: DEXAMETHASONE
     Indication: PRODUCT USED FOR UNKNOWN INDICATION
     Dosage: UNK
     Route: 065
     Dates: start: 202010
  7. TACROLIMUS MONOHYDRATE [Concomitant]
     Active Substance: TACROLIMUS
     Indication: PRODUCT USED FOR UNKNOWN INDICATION
     Dosage: 6?7
     Route: 065
     Dates: start: 202010
  8. KYMRIAH [Suspect]
     Active Substance: TISAGENLECLEUCEL
     Indication: ACUTE LYMPHOCYTIC LEUKAEMIA RECURRENT
     Dosage: UNK
     Route: 041
     Dates: start: 20200713
  9. PREDNISOLONE. [Concomitant]
     Active Substance: PREDNISOLONE
     Dosage: 0.5 MG/KG
     Route: 065
  10. METHOTREXATE. [Concomitant]
     Active Substance: METHOTREXATE
     Indication: PRODUCT USED FOR UNKNOWN INDICATION
     Dosage: UNK
     Route: 016
     Dates: start: 202010
  11. ENDOXAN [Suspect]
     Active Substance: CYCLOPHOSPHAMIDE
     Indication: CHEMOTHERAPY
     Dosage: 500 MG/M2, QD, 2DAYS
     Route: 041
     Dates: start: 20201026
  12. FLUDARABINE PHOSPHATE. [Concomitant]
     Active Substance: FLUDARABINE PHOSPHATE
     Indication: CHEMOTHERAPY
     Dosage: 30 MG/M2, QD, 4DAYS
     Route: 041
  13. PREDNISOLONE. [Concomitant]
     Active Substance: PREDNISOLONE
     Indication: HEMIPLEGIA
     Dosage: 30 MG
     Route: 065
     Dates: start: 202009
  14. PREDNISOLONE. [Concomitant]
     Active Substance: PREDNISOLONE
     Indication: CHRONIC GRAFT VERSUS HOST DISEASE
     Dosage: 2.5 MG
     Route: 065
     Dates: start: 20200918

REACTIONS (27)
  - Hypoxia [Fatal]
  - Erythema [Recovering/Resolving]
  - Pancytopenia [Recovering/Resolving]
  - Febrile neutropenia [Recovered/Resolved]
  - Pyrexia [Recovered/Resolved]
  - Back pain [Unknown]
  - Noninfective encephalitis [Recovering/Resolving]
  - White matter lesion [Unknown]
  - Pyrexia [Recovered/Resolved]
  - Hypoxia [Recovered/Resolved]
  - Cerebral atrophy [Unknown]
  - Dyskinesia [Recovering/Resolving]
  - Dyslalia [Unknown]
  - Hemiplegia [Recovering/Resolving]
  - Seizure [Unknown]
  - Somnolence [Recovering/Resolving]
  - Viral infection [Unknown]
  - Epilepsy [Unknown]
  - Depressed level of consciousness [Unknown]
  - Graft versus host disease [Fatal]
  - Dyspnoea [Fatal]
  - Immune effector cell-associated neurotoxicity syndrome [Recovered/Resolved]
  - Quadriplegia [Recovering/Resolving]
  - Angiopathy [Unknown]
  - Disorientation [Recovering/Resolving]
  - Aphasia [Recovering/Resolving]
  - Cytokine release syndrome [Recovered/Resolved]

NARRATIVE: CASE EVENT DATE: 2020
